FAERS Safety Report 7687801-1 (Version None)
Quarter: 2011Q3

REPORT INFORMATION
  Report Type: 
  Country: None (occurrence: None)
  Receive Date: 20110817
  Receipt Date: 20110805
  Transmission Date: 20111222
  Serious: Yes (Hospitalization)
  Sender: FDA-Public Use
  Company Number: US-ELI_LILLY_AND_COMPANY-US201004001230

PATIENT
  Sex: Female

DRUGS (6)
  1. FORTEO [Suspect]
     Dosage: 20 UG, QD
  2. FORTEO [Suspect]
     Dosage: 20 UG, DAILY (1/D)
  3. TAMOXIFEN CITRATE [Concomitant]
     Indication: NEOPLASM MALIGNANT
     Dosage: 20 MG, QD
  4. FORTEO [Suspect]
     Indication: OSTEOPOROSIS
     Dosage: 20 UG, DAILY (1/D)
     Dates: start: 20090901
  5. FORTEO [Suspect]
     Dosage: 20 UG, QD
     Dates: end: 20110705
  6. ATENOLOL [Concomitant]
     Dosage: 50 MG, QD

REACTIONS (4)
  - SEASONAL ALLERGY [None]
  - CATARACT [None]
  - ARTHRALGIA [None]
  - NEPHROLITHIASIS [None]
